FAERS Safety Report 21301240 (Version 1)
Quarter: 2022Q3

REPORT INFORMATION
  Report Type: Report from Study
  Country: CA (occurrence: CA)
  Receive Date: 20220907
  Receipt Date: 20220907
  Transmission Date: 20221026
  Serious: Yes (Other)
  Sender: FDA-Public Use
  Company Number: CA-TAKEDA-2022TUS003562

PATIENT
  Age: 48 Year
  Sex: Female

DRUGS (3)
  1. VEDOLIZUMAB [Suspect]
     Active Substance: VEDOLIZUMAB
     Indication: Crohn^s disease
     Dosage: 300 MILLIGRAM
     Route: 042
     Dates: start: 20210813
  2. VEDOLIZUMAB [Suspect]
     Active Substance: VEDOLIZUMAB
     Dosage: 300 MILLIGRAM, Q4WEEKS
     Route: 042
     Dates: start: 20220802
  3. MESALAMINE [Concomitant]
     Active Substance: MESALAMINE
     Dosage: 2.8 GRAM

REACTIONS (5)
  - Fistula [Unknown]
  - Diarrhoea [Unknown]
  - Abdominal pain [Unknown]
  - Therapeutic reaction time decreased [Unknown]
  - Off label use [Unknown]

NARRATIVE: CASE EVENT DATE: 20220802
